FAERS Safety Report 9034026 (Version 1)
Quarter: 2013Q1

REPORT INFORMATION
  Report Type: Spontaneous
  Country: CA (occurrence: CA)
  Receive Date: 20130128
  Receipt Date: 20130128
  Transmission Date: 20140127
  Serious: Yes (Other)
  Sender: FDA-Public Use
  Company Number: CA-AMGEN-CANSP2012063732

PATIENT
  Age: 69 Year
  Sex: Female
  Weight: 49.52 kg

DRUGS (1)
  1. PROLIA [Suspect]
     Indication: OSTEOPOROSIS
     Dosage: 60 MG, UNK
     Dates: start: 20120508

REACTIONS (5)
  - Ophthalmic herpes zoster [Unknown]
  - Urinary tract infection [Unknown]
  - Mouth ulceration [Unknown]
  - Gingival ulceration [Unknown]
  - Weight increased [Unknown]
